FAERS Safety Report 25749069 (Version 1)
Quarter: 2025Q3

REPORT INFORMATION
  Report Type: Spontaneous
  Country: CA (occurrence: CA)
  Receive Date: 20250902
  Receipt Date: 20250902
  Transmission Date: 20251020
  Serious: Yes (Life-Threatening, Hospitalization, Other)
  Sender: STRIDES
  Company Number: CA-STRIDES ARCOLAB LIMITED-2025SP010980

PATIENT
  Age: 15 Year

DRUGS (2)
  1. COLCHICINE [Suspect]
     Active Substance: COLCHICINE
     Indication: Product used for unknown indication
     Route: 048
  2. PANTOPRAZOLE [Suspect]
     Active Substance: PANTOPRAZOLE
     Indication: Product used for unknown indication
     Route: 048

REACTIONS (11)
  - Suicide attempt [Unknown]
  - Lactic acidosis [Recovering/Resolving]
  - Hepatic function abnormal [Recovering/Resolving]
  - Coagulopathy [Recovered/Resolved]
  - Pancytopenia [Not Recovered/Not Resolved]
  - Multiple organ dysfunction syndrome [Unknown]
  - Leukocytosis [Unknown]
  - Abdominal pain [Unknown]
  - Vomiting [Unknown]
  - Toxicity to various agents [Unknown]
  - Intentional overdose [Unknown]
